FAERS Safety Report 5692342-7 (Version None)
Quarter: 2008Q2

REPORT INFORMATION
  Report Type: 
  Country: None (occurrence: None)
  Receive Date: 20080402
  Receipt Date: 20080324
  Transmission Date: 20081010
  Serious: No
  Sender: FDA-Public Use
  Company Number: US-BAXTER-2008BH002768

PATIENT
  Age: 22 Month
  Sex: Female

DRUGS (4)
  1. SUPRANE [Suspect]
     Indication: GENERAL ANAESTHESIA
     Route: 055
  2. HALOTHANE [Concomitant]
     Indication: ANAESTHESIA
     Dosage: DOSE UNIT:UNKNOWN
     Route: 065
  3. FENTANYL [Concomitant]
     Indication: ANAESTHESIA
     Dosage: DOSE UNIT:UNKNOWN
     Route: 065
  4. NITROUS OXIDE [Concomitant]
     Indication: ANAESTHESIA
     Dosage: DOSE UNIT:UNKNOWN
     Route: 065

REACTIONS (1)
  - LARYNGOSPASM [None]
